FAERS Safety Report 20974843 (Version 1)
Quarter: 2022Q2

REPORT INFORMATION
  Report Type: Report from Study
  Country: CL (occurrence: CL)
  Receive Date: 20220617
  Receipt Date: 20220617
  Transmission Date: 20220721
  Serious: Yes (Other)
  Sender: FDA-Public Use
  Company Number: CL-NOVARTISPH-NVSC2022CL137024

PATIENT
  Age: 53 Year
  Sex: Male

DRUGS (1)
  1. COSENTYX [Suspect]
     Active Substance: SECUKINUMAB
     Indication: Psoriatic arthropathy
     Dosage: 300 MG, QMO
     Route: 058
     Dates: start: 20171201, end: 20220508

REACTIONS (1)
  - Neoplasm [Unknown]

NARRATIVE: CASE EVENT DATE: 20220607
